FAERS Safety Report 5119658-7 (Version None)
Quarter: 2006Q3

REPORT INFORMATION
  Report Type: 
  Country: None (occurrence: None)
  Receive Date: 20060929
  Receipt Date: 20060921
  Transmission Date: 20061208
  Serious: Yes (Hospitalization)
  Sender: FDA-Public Use
  Company Number: ES-2006-027756

PATIENT
  Age: 75 Year
  Sex: Male

DRUGS (1)
  1. BENEFLUR INJ.  (FLUDARABINE PHOSPHATE) AMPULE [Suspect]

REACTIONS (4)
  - HALLUCINATION, VISUAL [None]
  - INSOMNIA [None]
  - NERVOUSNESS [None]
  - POLYNEUROPATHY [None]
